FAERS Safety Report 22190816 (Version 1)
Quarter: 2023Q2

REPORT INFORMATION
  Report Type: Spontaneous
  Country: US (occurrence: None)
  Receive Date: 20230405
  Receipt Date: 20230405
  Transmission Date: 20230721
  Serious: Yes (Life-Threatening, Hospitalization)
  Sender: FDA-Public Use
  Company Number: None

PATIENT
  Age: 56 Year
  Sex: Female
  Weight: 101.6 kg

DRUGS (1)
  1. DIETARY SUPPLEMENT [Suspect]
     Active Substance: DIETARY SUPPLEMENT
     Indication: Sacroiliac joint dysfunction

REACTIONS (7)
  - Contusion [None]
  - Dyspnoea [None]
  - Fatigue [None]
  - Von Willebrand^s factor activity increased [None]
  - Pancytopenia [None]
  - Russell^s viper venom time abnormal [None]
  - Glycosylated haemoglobin increased [None]

NARRATIVE: CASE EVENT DATE: 20230329
